FAERS Safety Report 22131641 (Version 1)
Quarter: 2023Q1

REPORT INFORMATION
  Report Type: Spontaneous
  Country: US (occurrence: US)
  Receive Date: 20230323
  Receipt Date: 20230323
  Transmission Date: 20230417
  Serious: No
  Sender: FDA-Public Use
  Company Number: US-BAUSCHBL-2023BNL002200

PATIENT
  Age: 68 Year
  Sex: Male

DRUGS (1)
  1. ZIRGAN [Suspect]
     Active Substance: GANCICLOVIR
     Indication: Eye infection viral
     Route: 065

REACTIONS (2)
  - Therapy interrupted [Unknown]
  - Inability to afford medication [Unknown]
